FAERS Safety Report 10009050 (Version 2)
Quarter: 2014Q1

REPORT INFORMATION
  Report Type: Spontaneous
  Country: US (occurrence: US)
  Receive Date: 20140313
  Receipt Date: 20140313
  Transmission Date: 20141002
  Serious: No
  Sender: FDA-Public Use
  Company Number: US-GILEAD-2012-0057351

PATIENT
  Sex: Female

DRUGS (18)
  1. LETAIRIS [Suspect]
     Indication: PULMONARY HYPERTENSION
     Dosage: 10 MG, UNK
     Route: 048
     Dates: start: 20120112
  2. SPIRONOLACTONE [Concomitant]
  3. LORAZEPAM [Concomitant]
  4. CITALOPRAM [Concomitant]
  5. BENZTROPINE MESYLATE [Concomitant]
  6. WARFARIN SODIUM [Concomitant]
  7. HALOPERIDOL [Concomitant]
  8. KETOCONAZOLE [Concomitant]
  9. FUROSEMIDE [Concomitant]
  10. GABAPENTIN [Concomitant]
  11. OXYCODONE [Concomitant]
  12. PANTOPRAZOLE [Concomitant]
  13. POTASSIUM CHLORIDE [Concomitant]
  14. SILDENAFIL [Concomitant]
  15. RAMELTEON [Concomitant]
  16. OXCARBAZEPINE [Concomitant]
  17. EPOPROSTENOL [Concomitant]
  18. OLANZAPINE [Concomitant]

REACTIONS (1)
  - Insomnia [Unknown]
